FAERS Safety Report 9069786 (Version 1)
Quarter: 2013Q1

REPORT INFORMATION
  Report Type: Report from Study
  Country: US (occurrence: US)
  Receive Date: 20130215
  Receipt Date: 20130215
  Transmission Date: 20140127
  Serious: Yes (Hospitalization, Other)
  Sender: FDA-Public Use
  Company Number: US-ABBOTT-13P-163-1047612-00

PATIENT
  Age: 58 None
  Sex: Male

DRUGS (6)
  1. HUMIRA [Suspect]
     Indication: RHEUMATOID ARTHRITIS
     Dates: start: 2005
  2. CELEBREX [Suspect]
     Indication: PAIN
     Dates: start: 2012, end: 2012
  3. PLAUENIL [Concomitant]
     Indication: PRODUCT USED FOR UNKNOWN INDICATION
  4. VITAMIN B 12 [Concomitant]
     Indication: PRODUCT USED FOR UNKNOWN INDICATION
  5. VICODIN [Concomitant]
  6. VITAMIN D [Concomitant]
     Indication: VITAMIN D DECREASED
     Dates: start: 200603

REACTIONS (19)
  - Nasal septum deviation [Unknown]
  - Arthropathy [Recovered/Resolved]
  - Hip arthroplasty [Recovered/Resolved]
  - Hip arthroplasty [Recovered/Resolved]
  - Stevens-Johnson syndrome [Recovered/Resolved]
  - Pain [Recovered/Resolved]
  - Rash [Recovered/Resolved]
  - Urticaria [Recovered/Resolved]
  - Restless legs syndrome [Unknown]
  - Vitamin D decreased [Unknown]
  - Gastrooesophageal reflux disease [Unknown]
  - Hypersensitivity [Unknown]
  - Insomnia [Unknown]
  - Blood pressure increased [Unknown]
  - Hepatic enzyme increased [Unknown]
  - Lactose intolerance [Unknown]
  - Retching [Unknown]
  - Hypertension [Recovered/Resolved]
  - Candida infection [Recovering/Resolving]
